FAERS Safety Report 12373088 (Version 1)
Quarter: 2016Q2

REPORT INFORMATION
  Report Type: Report from Study
  Country: US (occurrence: US)
  Receive Date: 20160516
  Receipt Date: 20160516
  Transmission Date: 20160815
  Serious: Yes (Hospitalization)
  Sender: FDA-Public Use
  Company Number: US-MALLINCKRODT-T201504649

PATIENT
  Age: 43 Year
  Sex: Female

DRUGS (1)
  1. REPOSITORY CORTICOTROPIN INJECTION [Suspect]
     Active Substance: CORTICOTROPIN
     Indication: SYSTEMIC LUPUS ERYTHEMATOSUS
     Dosage: 80 UNITS TWICE PER WEEK
     Route: 058
     Dates: start: 20150916, end: 20151016

REACTIONS (3)
  - Anger [Unknown]
  - Cardiac failure congestive [Recovering/Resolving]
  - Impatience [Not Recovered/Not Resolved]

NARRATIVE: CASE EVENT DATE: 201510
